FAERS Safety Report 7396264-5 (Version None)
Quarter: 2011Q2

REPORT INFORMATION
  Report Type: 
  Country: None (occurrence: None)
  Receive Date: 20110406
  Receipt Date: 20110328
  Transmission Date: 20111010
  Serious: Yes (Hospitalization)
  Sender: FDA-Public Use
  Company Number: GR-US-EMD SERONO, INC.-7050587

PATIENT
  Sex: Female

DRUGS (7)
  1. T4 [Concomitant]
  2. ARVECAP [Concomitant]
  3. ONE ALPHA [Concomitant]
  4. ISRADIPINE [Concomitant]
  5. INDERAL [Concomitant]
  6. ZILORIC (ZYLORIC) [Concomitant]
  7. SAIZEN [Suspect]
     Indication: GROWTH HORMONE DEFICIENCY
     Route: 058
     Dates: start: 20101025, end: 20101201

REACTIONS (1)
  - RENAL FAILURE [None]
